FAERS Safety Report 12654482 (Version 1)
Quarter: 2016Q3

REPORT INFORMATION
  Report Type: Spontaneous
  Country: US (occurrence: None)
  Receive Date: 20160815
  Receipt Date: 20160815
  Transmission Date: 20161109
  Serious: Yes (Other)
  Sender: FDA-Public Use
  Company Number: None

PATIENT
  Age: 64 Year
  Sex: Male
  Weight: 120.2 kg

DRUGS (1)
  1. PRALUENT [Suspect]
     Active Substance: ALIROCUMAB
     Indication: BLOOD CHOLESTEROL INCREASED
     Dosage: 3 INJECTION(S) TWICE MONTHLY STOMACH
     Dates: start: 20160531, end: 20160627

REACTIONS (6)
  - Urticaria [None]
  - Rash [None]
  - Gastrointestinal disorder [None]
  - Muscle spasms [None]
  - Influenza like illness [None]
  - Rash erythematous [None]

NARRATIVE: CASE EVENT DATE: 20160613
